FAERS Safety Report 23288918 (Version 1)
Quarter: 2023Q4

REPORT INFORMATION
  Report Type: Spontaneous
  Country: CA (occurrence: CA)
  Receive Date: 20231212
  Receipt Date: 20231212
  Transmission Date: 20240110
  Serious: Yes (Hospitalization, Other)
  Sender: FDA-Public Use
  Company Number: CA-JNJFOC-20231216847

PATIENT
  Sex: Female

DRUGS (14)
  1. FAMOTIDINE [Suspect]
     Active Substance: FAMOTIDINE
     Indication: Morning sickness
     Route: 065
  2. FAMOTIDINE [Suspect]
     Active Substance: FAMOTIDINE
     Indication: Hyperemesis gravidarum
  3. FAMOTIDINE [Suspect]
     Active Substance: FAMOTIDINE
     Indication: Morning sickness
     Route: 042
  4. FAMOTIDINE [Suspect]
     Active Substance: FAMOTIDINE
     Indication: Hyperemesis gravidarum
  5. DIMENHYDRINATE [Suspect]
     Active Substance: DIMENHYDRINATE
     Indication: Morning sickness
     Route: 065
  6. DIMENHYDRINATE [Suspect]
     Active Substance: DIMENHYDRINATE
     Indication: Hyperemesis gravidarum
     Route: 042
  7. ONDANSETRON [Suspect]
     Active Substance: ONDANSETRON
     Indication: Morning sickness
     Route: 065
  8. ONDANSETRON [Suspect]
     Active Substance: ONDANSETRON
     Indication: Hyperemesis gravidarum
     Route: 065
  9. DOXYLAMINE SUCCINATE AND PYRIDOXINE HYDROCHLORIDE [Suspect]
     Active Substance: DOXYLAMINE SUCCINATE\PYRIDOXINE HYDROCHLORIDE
     Indication: Morning sickness
     Route: 048
  10. DOXYLAMINE SUCCINATE AND PYRIDOXINE HYDROCHLORIDE [Suspect]
     Active Substance: DOXYLAMINE SUCCINATE\PYRIDOXINE HYDROCHLORIDE
     Indication: Hyperemesis gravidarum
     Route: 065
  11. PROCHLORPERAZINE [Suspect]
     Active Substance: PROCHLORPERAZINE
     Indication: Morning sickness
     Route: 048
  12. PROCHLORPERAZINE [Suspect]
     Active Substance: PROCHLORPERAZINE
     Indication: Hyperemesis gravidarum
     Route: 048
  13. SUMATRIPTAN [Suspect]
     Active Substance: SUMATRIPTAN
     Indication: Migraine
     Route: 048
  14. SUMATRIPTAN [Suspect]
     Active Substance: SUMATRIPTAN
     Route: 065

REACTIONS (5)
  - Abortion spontaneous [Recovered/Resolved]
  - Exposure during pregnancy [Recovered/Resolved]
  - Off label use [Recovered/Resolved]
  - Serotonin syndrome [Recovered/Resolved]
  - Drug ineffective for unapproved indication [Recovered/Resolved]
